FAERS Safety Report 9356344 (Version 1)
Quarter: 2013Q2

REPORT INFORMATION
  Report Type: Spontaneous
  Country: US (occurrence: None)
  Receive Date: 20130614
  Receipt Date: 20130614
  Transmission Date: 20140414
  Serious: Yes (Hospitalization)
  Sender: FDA-Public Use
  Company Number: 2012NUEUSA00174

PATIENT
  Sex: Male

DRUGS (1)
  1. NUEDEXTA [Suspect]
     Indication: PRODUCT USED FOR UNKNOWN INDICATION
     Dosage: 20/10MG
     Dates: start: 20120511

REACTIONS (3)
  - Hospitalisation [None]
  - Fall [None]
  - Cognitive disorder [None]
